FAERS Safety Report 8891473 (Version 1)
Quarter: 2012Q4

REPORT INFORMATION
  Report Type: 
  Country: US (occurrence: US)
  Receive Date: 20121107
  Receipt Date: 20121107
  Transmission Date: 20130627
  Serious: Yes (Other)
  Sender: FDA-Public Use
  Company Number: US-GILEAD-2012-0064179

PATIENT
  Age: 45 Year
  Sex: Male

DRUGS (1)
  1. LETAIRIS [Suspect]
     Indication: PRODUCT USED FOR UNKNOWN INDICATION
     Dosage: 5 mg, UNK
     Route: 048
     Dates: start: 20081124

REACTIONS (5)
  - Limb injury [Unknown]
  - Femur fracture [Unknown]
  - Fall [Unknown]
  - Unevaluable event [Unknown]
  - Oedema peripheral [Unknown]
